FAERS Safety Report 6832266-2 (Version None)
Quarter: 2010Q3

REPORT INFORMATION
  Report Type: 
  Country: None (occurrence: None)
  Receive Date: 20100712
  Receipt Date: 20100702
  Transmission Date: 20110219
  Serious: Yes (Hospitalization)
  Sender: FDA-Public Use
  Company Number: CHPA2010US11164

PATIENT
  Age: 78 Year
  Sex: Female
  Weight: 65.76 kg

DRUGS (2)
  1. VOLTAREN [Suspect]
     Indication: RASH
     Dosage: UNK
     Route: 061
     Dates: start: 20100101
  2. VOLTAREN [Suspect]
     Dosage: 0.5 TSP, BID
     Route: 061
     Dates: start: 20100702, end: 20100101

REACTIONS (3)
  - ATRIAL FIBRILLATION [None]
  - DRUG ADMINISTERED AT INAPPROPRIATE SITE [None]
  - OFF LABEL USE [None]
